FAERS Safety Report 6717547-5 (Version None)
Quarter: 2010Q2

REPORT INFORMATION
  Report Type: 
  Country: None (occurrence: None)
  Receive Date: 20100510
  Receipt Date: 20100429
  Transmission Date: 20101027
  Serious: Yes (Other)
  Sender: FDA-Public Use
  Company Number: US-JNJCH-2010003368

PATIENT
  Age: 62 Year
  Sex: Female
  Weight: 59.4 kg

DRUGS (9)
  1. NEOSPORIN [Suspect]
     Indication: SKIN LACERATION
     Dosage: TEXT:^SMALL DAB^ 3X A DAY
     Route: 061
     Dates: start: 20100114, end: 20100128
  2. ALL OTHER NON-THERAPEUTIC PRODUCTS [Suspect]
     Indication: SKIN LACERATION
     Dosage: TEXT:UNKNOWN
     Route: 061
  3. XANAX [Concomitant]
     Indication: NERVOUS SYSTEM DISORDER
     Dosage: TEXT:ONE 1G 3X A DAY
     Route: 065
  4. HYDROCODONE BITARTRATE [Concomitant]
     Indication: ARTHRITIS
     Dosage: TEXT:ONE 7.5MG 3X A DAY
     Route: 065
  5. PROPRANOLOL [Concomitant]
     Indication: MIGRAINE
     Dosage: TEXT:ONE 40MG 3X A DAY
     Route: 065
  6. CYCLOBENZAPRINE [Concomitant]
     Indication: MUSCLE SPASMS
     Dosage: TEXT:ONE 10MG 3X A DAY
     Route: 065
  7. AMITRIPTLINE HYDROCHLORIDE TAB [Concomitant]
     Indication: SLEEP DISORDER
     Dosage: TEXT:ONE 50MG 1X A NIGHT
     Route: 065
  8. HYDROXYZINE [Concomitant]
     Indication: SLEEP DISORDER
     Dosage: TEXT:ONE 50MG 1X A NIGHT
     Route: 065
  9. POTASSIUM [Concomitant]
     Indication: MUSCLE SPASMS
     Dosage: TEXT:ONE 10MG 1X A DAY
     Route: 065

REACTIONS (3)
  - APPLICATION SITE VESICLES [None]
  - HYPERSENSITIVITY [None]
  - INCORRECT DRUG ADMINISTRATION DURATION [None]
